FAERS Safety Report 20279949 (Version 2)
Quarter: 2022Q1

REPORT INFORMATION
  Report Type: Spontaneous
  Country: US (occurrence: None)
  Receive Date: 20220103
  Receipt Date: 20220211
  Transmission Date: 20220424
  Serious: Yes (Other)
  Sender: FDA-Public Use
  Company Number: US-ROCHE-2986686

PATIENT
  Age: 46 Year
  Sex: Female

DRUGS (8)
  1. TUKYSA [Suspect]
     Active Substance: TUCATINIB
     Indication: Breast cancer metastatic
     Route: 065
  2. HERCEPTIN [Suspect]
     Active Substance: TRASTUZUMAB
     Indication: Product used for unknown indication
     Route: 065
  3. PERTUZUMAB [Suspect]
     Active Substance: PERTUZUMAB
     Indication: Product used for unknown indication
     Route: 065
  4. CAPECITABINE [Suspect]
     Active Substance: CAPECITABINE
     Indication: Product used for unknown indication
     Route: 065
  5. DOCETAXEL [Concomitant]
     Active Substance: DOCETAXEL
  6. PACLITAXEL [Concomitant]
     Active Substance: PACLITAXEL
  7. TAMOXIFEN [Concomitant]
     Active Substance: TAMOXIFEN
  8. APIXABAN [Concomitant]
     Active Substance: APIXABAN

REACTIONS (9)
  - Dyspnoea [Unknown]
  - Pneumonitis [Unknown]
  - Lung disorder [Unknown]
  - Decreased appetite [Unknown]
  - Weight decreased [Unknown]
  - Pain [Unknown]
  - Nausea [Unknown]
  - Hepatotoxicity [Unknown]
  - Liver disorder [Unknown]

NARRATIVE: CASE EVENT DATE: 20190201
